FAERS Safety Report 25737545 (Version 1)
Quarter: 2025Q3

REPORT INFORMATION
  Report Type: Spontaneous
  Country: US (occurrence: US)
  Receive Date: 20250828
  Receipt Date: 20250828
  Transmission Date: 20251021
  Serious: No
  Sender: ELI LILLY AND COMPANY
  Company Number: US-ELI_LILLY_AND_COMPANY-US202508028416

PATIENT
  Age: 64 Year

DRUGS (1)
  1. BASAGLAR [Suspect]
     Active Substance: INSULIN GLARGINE
     Indication: Product used for unknown indication
     Route: 058

REACTIONS (3)
  - Accidental underdose [Not Recovered/Not Resolved]
  - Injection site haemorrhage [Recovering/Resolving]
  - Injection site bruising [Recovering/Resolving]
